FAERS Safety Report 8170729-0 (Version None)
Quarter: 2012Q1

REPORT INFORMATION
  Report Type: 
  Country: None (occurrence: None)
  Receive Date: 20120228
  Receipt Date: 20120123
  Transmission Date: 20120608
  Serious: Yes (Other)
  Sender: FDA-Public Use
  Company Number: US-ROCHE-1021943

PATIENT
  Sex: Male
  Weight: 82.174 kg

DRUGS (4)
  1. ZELBORAF [Suspect]
     Indication: MALIGNANT MELANOMA
     Route: 048
     Dates: start: 20111210
  2. ZOCOR [Concomitant]
     Dosage: UNKNOWN
  3. ZOFRAN [Concomitant]
     Dosage: UNKNOWN
  4. REGLAN [Concomitant]
     Dosage: UNKNOWN

REACTIONS (7)
  - HEPATIC MASS [None]
  - MYALGIA [None]
  - PULMONARY MASS [None]
  - ARTHRALGIA [None]
  - RASH PAPULAR [None]
  - ERYTHEMA [None]
  - PRURITUS [None]
